FAERS Safety Report 20924841 (Version 1)
Quarter: 2022Q2

REPORT INFORMATION
  Report Type: Spontaneous
  Country: US (occurrence: US)
  Receive Date: 20220607
  Receipt Date: 20220607
  Transmission Date: 20220720
  Serious: No
  Sender: FDA-Public Use
  Company Number: US-PFIZER INC-202200798104

PATIENT
  Age: 49 Year
  Sex: Female

DRUGS (1)
  1. PAXLOVID [Suspect]
     Active Substance: NIRMATRELVIR\RITONAVIR
     Indication: COVID-19 treatment
     Dosage: UNK
     Route: 048
     Dates: start: 20220519, end: 20220525

REACTIONS (9)
  - Lacrimation increased [Recovering/Resolving]
  - Eye pruritus [Recovering/Resolving]
  - Sneezing [Recovering/Resolving]
  - Throat clearing [Recovering/Resolving]
  - Nasal congestion [Recovering/Resolving]
  - Pyrexia [Recovered/Resolved]
  - COVID-19 [Unknown]
  - Disease recurrence [Unknown]
  - Incorrect product administration duration [Unknown]

NARRATIVE: CASE EVENT DATE: 20220519
